FAERS Safety Report 9935321 (Version 3)
Quarter: 2014Q2

REPORT INFORMATION
  Report Type: Spontaneous
  Country: GR (occurrence: GR)
  Receive Date: 20140228
  Receipt Date: 20140409
  Transmission Date: 20141212
  Serious: Yes (Hospitalization, Other)
  Sender: FDA-Public Use
  Company Number: GR-PFIZER INC-2014055038

PATIENT
  Age: 67 Year
  Sex: Male

DRUGS (1)
  1. TORISEL [Suspect]
     Indication: RENAL CANCER METASTATIC
     Dosage: UNK
     Dates: start: 201310, end: 20131217

REACTIONS (5)
  - Peritonitis [Not Recovered/Not Resolved]
  - Haemorrhagic ascites [Recovering/Resolving]
  - Vomiting [Not Recovered/Not Resolved]
  - Disease progression [Unknown]
  - Renal cancer metastatic [Unknown]
